FAERS Safety Report 7962745-6 (Version None)
Quarter: 2011Q4

REPORT INFORMATION
  Report Type: 
  Country: None (occurrence: None)
  Receive Date: 20111207
  Receipt Date: 20111122
  Transmission Date: 20120403
  Serious: Yes (Life-Threatening, Hospitalization)
  Sender: FDA-Public Use
  Company Number: US-PURDUE-DEU-2011-0008079

PATIENT
  Age: 67 Year
  Sex: Male

DRUGS (4)
  1. MORPHINE SULFATE [Suspect]
     Indication: ABDOMINAL PAIN
     Route: 042
  2. ATENOLOL [Concomitant]
     Indication: HYPERTENSION
  3. LOSARTAN POTASSIUM [Concomitant]
     Indication: HYPERTENSION
  4. PROPOFOL [Suspect]
     Indication: INDUCTION OF ANAESTHESIA
     Dosage: 100 MG, UNK

REACTIONS (1)
  - CIRCULATORY COLLAPSE [None]
